FAERS Safety Report 18178231 (Version 5)
Quarter: 2020Q3

REPORT INFORMATION
  Report Type: Spontaneous
  Country: GB (occurrence: GB)
  Receive Date: 20200820
  Receipt Date: 20200915
  Transmission Date: 20201103
  Serious: Yes (Hospitalization, Other)
  Sender: FDA-Public Use
  Company Number: NVSC2020GB194736

PATIENT
  Age: 57 Year
  Sex: Female
  Weight: 79.5 kg

DRUGS (26)
  1. AMLODIPINE [Suspect]
     Active Substance: AMLODIPINE BESYLATE
     Dosage: 70 MG
     Route: 048
     Dates: start: 20200628, end: 20200628
  2. NAPROXEN. [Suspect]
     Active Substance: NAPROXEN
     Indication: PAIN
  3. PARACETAMOL [Suspect]
     Active Substance: ACETAMINOPHEN
     Indication: SCIATICA
     Dosage: 15 G
     Route: 048
     Dates: start: 20200628, end: 20200628
  4. CLOZARIL [Suspect]
     Active Substance: CLOZAPINE
     Dosage: 400 MG, QD
     Route: 048
     Dates: start: 2020
  5. BECLOMETASONE [Concomitant]
     Active Substance: BECLOMETHASONE DIPROPIONATE
     Indication: CHRONIC OBSTRUCTIVE PULMONARY DISEASE
  6. LANSOPRAZOLE. [Suspect]
     Active Substance: LANSOPRAZOLE
     Indication: PROPHYLAXIS AGAINST GASTROINTESTINAL ULCER
     Dosage: 15 MG, QD
     Route: 048
     Dates: end: 20200628
  7. PARACETAMOL [Suspect]
     Active Substance: ACETAMINOPHEN
     Indication: PAIN
  8. SALBUTAMOL [Concomitant]
     Active Substance: ALBUTEROL
     Indication: ASTHMA
     Dosage: UNK (1?2 PUFFS QDS/ PRN, INHALER)
     Route: 048
     Dates: end: 20200628
  9. AQUADERM [Concomitant]
     Indication: DRY SKIN
     Dosage: UNK
     Route: 061
     Dates: end: 20200628
  10. MIRTAZAPINE. [Suspect]
     Active Substance: MIRTAZAPINE
     Indication: DEPRESSION
     Dosage: 45 MG, QD
     Route: 048
     Dates: end: 20200628
  11. NAPROXEN. [Suspect]
     Active Substance: NAPROXEN
     Indication: ARTHRITIS
  12. BECLOMETASONE [Concomitant]
     Active Substance: BECLOMETHASONE DIPROPIONATE
     Indication: ASTHMA
     Dosage: UNK, BID (2 PUFFS, BID, INHALER)
     Route: 048
     Dates: end: 20200628
  13. HYALURONATE SODIUM [Concomitant]
     Active Substance: HYALURONATE SODIUM
     Indication: DRY SKIN
     Dosage: UNK
     Route: 061
     Dates: end: 20200628
  14. CLOZARIL [Suspect]
     Active Substance: CLOZAPINE
     Dosage: 4.2 G, QD
     Route: 048
     Dates: start: 20200628, end: 20200628
  15. AMLODIPINE [Suspect]
     Active Substance: AMLODIPINE BESYLATE
     Indication: DEPRESSION
     Dosage: 5 MG, QD
     Route: 048
     Dates: end: 20200628
  16. PARACETAMOL [Suspect]
     Active Substance: ACETAMINOPHEN
     Indication: ARTHRITIS
  17. CLOZARIL [Suspect]
     Active Substance: CLOZAPINE
     Indication: SCHIZOPHRENIA
     Dosage: 600 MG, QD
     Route: 048
     Dates: start: 20050118, end: 20200628
  18. NAPROXEN. [Suspect]
     Active Substance: NAPROXEN
     Indication: PAIN
     Dosage: 21 G
     Route: 048
     Dates: start: 20200628, end: 20200628
  19. LANSOPRAZOLE. [Suspect]
     Active Substance: LANSOPRAZOLE
     Dosage: 105 MG, UNKNOWN
     Route: 048
     Dates: start: 20200628, end: 20200628
  20. ADCAL D3 [Concomitant]
     Active Substance: CALCIUM CARBONATE\CHOLECALCIFEROL
     Indication: SUPPLEMENTATION THERAPY
     Dosage: 4 DF, QD (2 DOSAGE FORM, BID, 750 MG/100 UNITS)
     Route: 048
     Dates: end: 20200628
  21. MIRTAZAPINE. [Suspect]
     Active Substance: MIRTAZAPINE
     Dosage: 315 MG
     Route: 048
     Dates: start: 20200628, end: 20200628
  22. NAPROXEN. [Suspect]
     Active Substance: NAPROXEN
     Indication: SCIATICA
     Dosage: 1000 MG, QD
     Route: 048
     Dates: end: 20200628
  23. SALBUTAMOL [Concomitant]
     Active Substance: ALBUTEROL
     Indication: CHRONIC OBSTRUCTIVE PULMONARY DISEASE
  24. PARACETAMOL [Suspect]
     Active Substance: ACETAMINOPHEN
     Indication: PAIN
     Dosage: UNK, PRN (500 MG TO 1 GRAM, QDS)
     Route: 048
     Dates: end: 20200628
  25. SALBUTAMOL [Concomitant]
     Active Substance: ALBUTEROL
     Indication: CHRONIC OBSTRUCTIVE PULMONARY DISEASE
  26. ACETYLCYSTEINE. [Concomitant]
     Active Substance: ACETYLCYSTEINE
     Indication: PRODUCT USED FOR UNKNOWN INDICATION
     Dosage: UNK
     Route: 065

REACTIONS (3)
  - Overdose [Recovering/Resolving]
  - Sinus tachycardia [Unknown]
  - Haemorrhage [Unknown]

NARRATIVE: CASE EVENT DATE: 2020
